FAERS Safety Report 6081319-8 (Version None)
Quarter: 2009Q1

REPORT INFORMATION
  Report Type: 
  Country: None (occurrence: None)
  Receive Date: 20090212
  Receipt Date: 20090203
  Transmission Date: 20090719
  Serious: Yes (Other)
  Sender: FDA-Public Use
  Company Number: 2008US003026

PATIENT
  Age: 70 Year
  Sex: Male
  Weight: 88.4 kg

DRUGS (3)
  1. AMEVIVE [Suspect]
     Indication: PSORIASIS
     Dosage: 15 MG, 05 ML, WEEKLY, INTRAMUSCULAR
     Route: 030
     Dates: start: 20031112, end: 20040128
  2. AMEVIVE [Suspect]
     Indication: PSORIASIS
     Dosage: 15 MG, 05 ML, WEEKLY, INTRAMUSCULAR
     Route: 030
     Dates: start: 20040510, end: 20040823
  3. ENBREL [Concomitant]

REACTIONS (1)
  - DIABETES MELLITUS [None]
